FAERS Safety Report 8683149 (Version 3)
Quarter: 2013Q4

REPORT INFORMATION
  Report Type: Spontaneous
  Country: US (occurrence: US)
  Receive Date: 20120726
  Receipt Date: 20131101
  Transmission Date: 20140711
  Serious: No
  Sender: FDA-Public Use
  Company Number: US-009507513-1207USA005261

PATIENT
  Age: 70 Year
  Sex: Male
  Weight: 90.7 kg

DRUGS (6)
  1. JANUMET [Suspect]
     Indication: TYPE 2 DIABETES MELLITUS
     Dosage: 50/1000MG, BID
     Route: 048
     Dates: start: 201106
  2. CRESTOR [Concomitant]
  3. LISINOPRIL [Concomitant]
  4. LOVAZA [Concomitant]
  5. PLAVIX [Concomitant]
  6. GLIPIZIDE XL [Concomitant]

REACTIONS (1)
  - Lipase increased [Unknown]
